FAERS Safety Report 10659269 (Version 3)
Quarter: 2015Q1

REPORT INFORMATION
  Report Type: Report from Study
  Country: US (occurrence: US)
  Receive Date: 20141217
  Receipt Date: 20150126
  Transmission Date: 20150720
  Serious: Yes (Death, Hospitalization)
  Sender: FDA-Public Use
  Company Number: US-ABBVIE-14K-163-1321534-00

PATIENT
  Age: 87 Year
  Sex: Female
  Weight: 68.1 kg

DRUGS (14)
  1. FUROSEMIDE. [Concomitant]
     Active Substance: FUROSEMIDE
     Indication: CARDIAC FAILURE CONGESTIVE
  2. PAROXETINE [Concomitant]
     Active Substance: PAROXETINE\PAROXETINE HYDROCHLORIDE
     Indication: DEPRESSION
  3. DIGOXIN. [Concomitant]
     Active Substance: DIGOXIN
     Indication: CARDIAC FAILURE CONGESTIVE
  4. HUMIRA [Suspect]
     Active Substance: ADALIMUMAB
     Indication: PSORIASIS
     Route: 065
     Dates: start: 201109, end: 201412
  5. OMEPRAZOLE. [Concomitant]
     Active Substance: OMEPRAZOLE
     Indication: GASTROOESOPHAGEAL REFLUX DISEASE
  6. NOVOLOG [Concomitant]
     Active Substance: INSULIN ASPART
     Indication: DIABETES MELLITUS
  7. CALCIUM WITH D3 [Concomitant]
     Indication: VITAMIN SUPPLEMENTATION
  8. ISOSORBIDE [Concomitant]
     Active Substance: ISOSORBIDE
     Indication: CARDIAC FAILURE CONGESTIVE
  9. CARVEDILOL. [Concomitant]
     Active Substance: CARVEDILOL
     Indication: CARDIAC FAILURE CONGESTIVE
  10. METHOTREXATE [Concomitant]
     Active Substance: METHOTREXATE
     Indication: PSORIASIS
  11. FOLIC ACID. [Concomitant]
     Active Substance: FOLIC ACID
     Indication: VITAMIN SUPPLEMENTATION
  12. LINZESS [Concomitant]
     Active Substance: LINACLOTIDE
     Indication: CONSTIPATION
  13. ASPIRIN. [Concomitant]
     Active Substance: ASPIRIN
     Indication: CARDIAC DISORDER
  14. AMIODARONE [Concomitant]
     Active Substance: AMIODARONE
     Indication: CARDIAC FAILURE CONGESTIVE

REACTIONS (2)
  - Cardiac failure congestive [Fatal]
  - Renal failure [Not Recovered/Not Resolved]

NARRATIVE: CASE EVENT DATE: 201309
